FAERS Safety Report 12364180 (Version 1)
Quarter: 2016Q2

REPORT INFORMATION
  Report Type: Spontaneous
  Country: US (occurrence: US)
  Receive Date: 20160512
  Receipt Date: 20160512
  Transmission Date: 20160815
  Serious: No
  Sender: FDA-Public Use
  Company Number: ALCN2016US003282

PATIENT
  Sex: Male

DRUGS (1)
  1. NEO AND POLYMYXIN B SULFATES + DEX [Suspect]
     Active Substance: DEXAMETHASONE\NEOMYCIN SULFATE\POLYMYXIN B SULFATE
     Indication: PRODUCT USED FOR UNKNOWN INDICATION
     Dosage: 1 GTT, QID
     Route: 047
     Dates: start: 20160509

REACTIONS (2)
  - Eye irritation [Unknown]
  - Medication residue present [Unknown]

NARRATIVE: CASE EVENT DATE: 20160509
